FAERS Safety Report 4519753-7 (Version None)
Quarter: 2004Q4

REPORT INFORMATION
  Report Type: 
  Country: None (occurrence: None)
  Receive Date: 20041207
  Receipt Date: 20041129
  Transmission Date: 20050328
  Serious: Yes (Other)
  Sender: FDA-Public Use
  Company Number: US-ABBOTT-04P-163-0281534-00

PATIENT
  Sex: Female
  Weight: 43.13 kg

DRUGS (3)
  1. SYNTHROID 25 MCG [Suspect]
     Indication: HYPOTHYROIDISM
     Route: 048
     Dates: start: 20040212
  2. RABEPRAZOLE SODIUM [Concomitant]
     Indication: GASTROOESOPHAGEAL REFLUX DISEASE
     Route: 048
     Dates: start: 20031001
  3. MACROGOL [Concomitant]
     Indication: DRUG USE FOR UNKNOWN INDICATION
     Route: 048

REACTIONS (1)
  - PORPHYRIA [None]
